FAERS Safety Report 7226808-5 (Version None)
Quarter: 2011Q1

REPORT INFORMATION
  Report Type: 
  Country: None (occurrence: None)
  Receive Date: 20110114
  Receipt Date: 20110110
  Transmission Date: 20110831
  Serious: Yes (Hospitalization)
  Sender: FDA-Public Use
  Company Number: DE-SANOFI-AVENTIS-2011SA001684

PATIENT

DRUGS (2)
  1. CORDAREX [Suspect]
     Route: 065
  2. MULTAQ [Suspect]
     Indication: ATRIAL FIBRILLATION
     Route: 065

REACTIONS (2)
  - SCAB [None]
  - LUNG DISORDER [None]
